FAERS Safety Report 12592008 (Version 1)
Quarter: 2016Q3

REPORT INFORMATION
  Report Type: Spontaneous
  Country: US (occurrence: None)
  Receive Date: 20160725
  Receipt Date: 20160725
  Transmission Date: 20161109
  Serious: No
  Sender: FDA-Public Use
  Company Number: None

PATIENT
  Age: 68 Year
  Sex: Female
  Weight: 73.94 kg

DRUGS (18)
  1. LEVOTHYROXIN [Concomitant]
     Active Substance: LEVOTHYROXINE
  2. METOPROLOL. [Concomitant]
     Active Substance: METOPROLOL
  3. VITAMIN C [Concomitant]
     Active Substance: ASCORBIC ACID
  4. SIMVASTATIN. [Concomitant]
     Active Substance: SIMVASTATIN
  5. CALCIUM [Concomitant]
     Active Substance: CALCIUM
  6. MAJOR LUBRIFRESH PM [Suspect]
     Active Substance: MINERAL OIL\PETROLATUM
     Indication: PROPHYLAXIS
     Dosage: 3.5 OUNCE (S) AT BEDTIME INTO THE EYE
     Route: 031
     Dates: start: 20100101, end: 20160722
  7. PANTOPRAZOLE [Concomitant]
     Active Substance: PANTOPRAZOLE SODIUM
  8. LORAZAPAM [Concomitant]
     Active Substance: LORAZEPAM
  9. CRANBERRY. [Concomitant]
     Active Substance: CRANBERRY
  10. VITAMIN D3 [Concomitant]
     Active Substance: CHOLECALCIFEROL
  11. BABY ASPIRIN [Concomitant]
     Active Substance: ASPIRIN
  12. STOOL SOFTENER [Concomitant]
     Active Substance: DOCUSATE CALCIUM
  13. GABAPENTIN. [Concomitant]
     Active Substance: GABAPENTIN
  14. FISH OIL [Concomitant]
     Active Substance: FISH OIL
  15. CETIRIZINE [Concomitant]
     Active Substance: CETIRIZINE HYDROCHLORIDE
  16. LOZOL [Concomitant]
     Active Substance: INDAPAMIDE
  17. MAJOR LUBRIFRESH PM [Suspect]
     Active Substance: MINERAL OIL\PETROLATUM
     Indication: EYE DISORDER
     Dosage: 3.5 OUNCE (S) AT BEDTIME INTO THE EYE
     Route: 031
     Dates: start: 20100101, end: 20160722
  18. LOTREL [Concomitant]
     Active Substance: AMLODIPINE BESYLATE\BENAZEPRIL HYDROCHLORIDE

REACTIONS (7)
  - Product quality issue [None]
  - Eyelid oedema [None]
  - No reaction on previous exposure to drug [None]
  - Ocular hyperaemia [None]
  - Lacrimation increased [None]
  - Photophobia [None]
  - Visual impairment [None]

NARRATIVE: CASE EVENT DATE: 20160601
